FAERS Safety Report 21684385 (Version 3)
Quarter: 2023Q1

REPORT INFORMATION
  Report Type: Report from Study
  Country: IT (occurrence: IT)
  Receive Date: 20221205
  Receipt Date: 20230127
  Transmission Date: 20230418
  Serious: Yes (Hospitalization)
  Sender: FDA-Public Use
  Company Number: IT-PFIZER INC-PV202200113310

PATIENT
  Age: 39 Year

DRUGS (2)
  1. CYTOTEC [Suspect]
     Active Substance: MISOPROSTOL
     Dosage: 200 UG, 4X/DAY
     Route: 067
     Dates: start: 20180907, end: 20180907
  2. METHYLERGONOVINE MALEATE [Suspect]
     Active Substance: METHYLERGONOVINE MALEATE
     Indication: Abortion
     Dosage: UNK
     Route: 048
     Dates: start: 20180908, end: 20180908

REACTIONS (2)
  - Pelvic pain [Recovering/Resolving]
  - Post abortion haemorrhage [Recovering/Resolving]

NARRATIVE: CASE EVENT DATE: 20180911
